FAERS Safety Report 16979271 (Version 1)
Quarter: 2019Q4

REPORT INFORMATION
  Report Type: Spontaneous
  Country: DK (occurrence: DK)
  Receive Date: 20191031
  Receipt Date: 20191031
  Transmission Date: 20200122
  Serious: Yes (Other)
  Sender: FDA-Public Use
  Company Number: DK-JNJFOC-20191042310

PATIENT
  Age: 83 Year
  Sex: Male
  Weight: 72.5 kg

DRUGS (1)
  1. RIVAROXABAN [Suspect]
     Active Substance: RIVAROXABAN
     Indication: THROMBOSIS PROPHYLAXIS
     Dosage: DAILY DOSE 20 MG
     Route: 048
     Dates: start: 20190920, end: 20190925

REACTIONS (7)
  - Dehydration [Unknown]
  - Decreased appetite [Unknown]
  - Gastric ulcer haemorrhage [Recovering/Resolving]
  - Skin discolouration [Unknown]
  - Confusional state [Unknown]
  - Haematochezia [Unknown]
  - Incoherent [Unknown]

NARRATIVE: CASE EVENT DATE: 20190924
